FAERS Safety Report 11464664 (Version 5)
Quarter: 2016Q4

REPORT INFORMATION
  Report Type: Spontaneous
  Country: DE (occurrence: DE)
  Receive Date: 20150906
  Receipt Date: 20161005
  Transmission Date: 20170206
  Serious: Yes (Death, Other)
  Sender: FDA-Public Use
  Company Number: DE-BRISTOL-MYERS SQUIBB COMPANY-BMS-2015-059573

PATIENT
  Age: 69 Year
  Sex: Male
  Weight: 112 kg

DRUGS (4)
  1. RAMIPRIL. [Concomitant]
     Active Substance: RAMIPRIL
     Indication: PRODUCT USED FOR UNKNOWN INDICATION
     Route: 065
  2. ELIQUIS [Suspect]
     Active Substance: APIXABAN
     Indication: CEREBROVASCULAR ACCIDENT PROPHYLAXIS
     Dosage: 5 MG, BID
     Route: 048
     Dates: start: 20140424
  3. CLINDAMYCIN. [Suspect]
     Active Substance: CLINDAMYCIN
     Indication: PRODUCT USED FOR UNKNOWN INDICATION
     Route: 065
  4. ADENURIC [Concomitant]
     Active Substance: FEBUXOSTAT
     Indication: PRODUCT USED FOR UNKNOWN INDICATION
     Route: 065

REACTIONS (9)
  - Hypoxia [Fatal]
  - Pulmonary hypertension [Unknown]
  - Respiratory failure [Fatal]
  - Sepsis [Fatal]
  - Thrombocytopenia [Unknown]
  - Pneumonia [Fatal]
  - Pulmonary fibrosis [Fatal]
  - Syncope [Unknown]
  - Hypotension [Unknown]

NARRATIVE: CASE EVENT DATE: 20150718
